FAERS Safety Report 9878171 (Version 1)
Quarter: 2014Q1

REPORT INFORMATION
  Report Type: Spontaneous
  Country: AT (occurrence: AT)
  Receive Date: 20140206
  Receipt Date: 20140206
  Transmission Date: 20141002
  Serious: Yes (Other)
  Sender: FDA-Public Use
  Company Number: PHHY2014AT012665

PATIENT
  Age: 24 Year
  Sex: Female

DRUGS (4)
  1. CICLOSPORIN [Suspect]
     Indication: IMMUNOSUPPRESSION
  2. PREDNISOLONE [Suspect]
     Indication: IMMUNOSUPPRESSION
  3. NIFEDIPINE [Suspect]
     Indication: HYPERTENSION
  4. METHYLPREDNISOLONE [Suspect]
     Indication: KIDNEY TRANSPLANT REJECTION

REACTIONS (9)
  - Foetal growth restriction [Unknown]
  - Uterine obstruction [Unknown]
  - Kidney transplant rejection [Recovered/Resolved]
  - Renal impairment [Unknown]
  - Hydronephrosis [Recovering/Resolving]
  - Hypertension [Unknown]
  - Premature labour [Unknown]
  - Immunosuppressant drug level increased [Unknown]
  - Exposure during pregnancy [Unknown]
